FAERS Safety Report 9393057 (Version 2)
Quarter: 2013Q3

REPORT INFORMATION
  Report Type: Spontaneous
  Country: DE (occurrence: DE)
  Receive Date: 20130710
  Receipt Date: 20130719
  Transmission Date: 20140515
  Serious: Yes (Hospitalization, Other)
  Sender: FDA-Public Use
  Company Number: DE-PFIZER INC-2013201832

PATIENT
  Age: 76 Year
  Sex: Female

DRUGS (11)
  1. RAMIPRIL [Suspect]
     Indication: HYPERTENSION
     Dosage: 10MG/D
     Route: 048
     Dates: end: 20090815
  2. AMLODIPINE BESILATE [Suspect]
     Indication: HYPERTENSION
     Dosage: 5MG/D
     Route: 048
     Dates: start: 20090807, end: 20090815
  3. BISOPROLOL FUMARATE [Suspect]
     Indication: HYPERTENSION
     Dosage: 5MG/D
     Route: 048
     Dates: end: 20090815
  4. HCT HEXAL [Suspect]
     Indication: HYPERTENSION
     Dosage: 12.5 MG DAILY
     Route: 048
     Dates: end: 20090815
  5. DOMINAL [Suspect]
     Indication: SLEEP DISORDER THERAPY
     Dosage: 80MG/AT BEDTIME
     Route: 048
     Dates: start: 20090723, end: 20090817
  6. CIPRAMIL [Suspect]
     Dosage: 10MG DAILY
     Route: 048
     Dates: start: 20090724, end: 20090804
  7. CIPRAMIL [Suspect]
     Dosage: 20MG DAILY
     Route: 048
     Dates: start: 20090805, end: 20090806
  8. CIPRAMIL [Suspect]
     Dosage: 40MG DAILY
     Route: 048
     Dates: start: 20090807, end: 20090817
  9. ARICEPT [Concomitant]
     Dosage: 5MG/D
     Route: 048
     Dates: start: 20090804, end: 20090813
  10. ARICEPT [Concomitant]
     Dosage: 10MG/D
     Route: 048
     Dates: start: 20090814
  11. ACETYLSALICYLIC ACID [Concomitant]
     Dosage: 100MG/D
     Route: 048

REACTIONS (4)
  - Hypotension [Recovered/Resolved]
  - Dizziness [Recovered/Resolved]
  - Dysarthria [Recovered/Resolved]
  - Blood pressure increased [Recovered/Resolved]
